FAERS Safety Report 9309445 (Version 1)
Quarter: 2013Q2

REPORT INFORMATION
  Report Type: Spontaneous
  Country: US (occurrence: US)
  Receive Date: 20130525
  Receipt Date: 20130525
  Transmission Date: 20140414
  Serious: No
  Sender: FDA-Public Use
  Company Number: US-BRISTOL-MYERS SQUIBB COMPANY-18714261

PATIENT
  Age: 65 Year
  Sex: Male

DRUGS (3)
  1. BYDUREON [Suspect]
     Indication: TYPE 2 DIABETES MELLITUS
     Dosage: 10 MG TOTAL
     Route: 058
     Dates: start: 20130121, end: 20130220
  2. METFORMIN [Concomitant]
     Indication: TYPE 2 DIABETES MELLITUS
     Route: 048
  3. VICTOZA [Concomitant]
     Indication: TYPE 2 DIABETES MELLITUS
     Route: 058

REACTIONS (1)
  - Injection site nodule [Not Recovered/Not Resolved]
